FAERS Safety Report 4639150-3 (Version None)
Quarter: 2005Q2

REPORT INFORMATION
  Report Type: 
  Country: None (occurrence: None)
  Receive Date: 20050418
  Receipt Date: 20050411
  Transmission Date: 20051028
  Serious: Yes (Hospitalization, Other)
  Sender: FDA-Public Use
  Company Number: 2005-04-0394

PATIENT
  Age: 82 Year
  Sex: Female

DRUGS (2)
  1. GENTAMICIN [Suspect]
     Indication: INFECTION
     Dosage: 3.2 MG/KG QD INTRAVENOUS
     Route: 042
  2. CEPHALOTHIN INJECTABLE SOLUTION [Concomitant]

REACTIONS (9)
  - BARTTER'S SYNDROME [None]
  - HYPOKALAEMIA [None]
  - HYPOMAGNESAEMIA [None]
  - LETHARGY [None]
  - METABOLIC ALKALOSIS [None]
  - NOCTURIA [None]
  - PARAESTHESIA [None]
  - POLYURIA [None]
  - TETANY [None]
